FAERS Safety Report 17197939 (Version 2)
Quarter: 2020Q2

REPORT INFORMATION
  Report Type: Report from Study
  Country: JP (occurrence: JP)
  Receive Date: 20191225
  Receipt Date: 20200424
  Transmission Date: 20200713
  Serious: Yes (Hospitalization)
  Sender: FDA-Public Use
  Company Number: JP-ROCHE-2505200

PATIENT
  Age: 67 Year
  Sex: Male
  Weight: 66 kg

DRUGS (7)
  1. OLMESARTAN OD [Suspect]
     Active Substance: OLMESARTAN MEDOXOMIL
     Indication: HYPERTENSION
     Dosage: THE BEGINNING OF DOSAGE DAY: FROM THE [TESENTORIKU] PREINITIATION
     Route: 048
  2. BISOPROLOL FUMARATE. [Suspect]
     Active Substance: BISOPROLOL FUMARATE
     Indication: HYPERTENSION
     Dosage: THE BEGINNING OF DOSAGE DAY: FROM THE [TESENTORIKU] PREINITIATION
     Route: 048
  3. URIEF [Suspect]
     Active Substance: SILODOSIN
     Indication: BENIGN PROSTATIC HYPERPLASIA
     Dosage: THE BEGINNING OF DOSAGE DAY: FROM THE [TESENTORIKU] PREINITIATION
     Route: 048
  4. ZALUTIA [Suspect]
     Active Substance: TADALAFIL
     Indication: BENIGN PROSTATIC HYPERPLASIA
     Dosage: THE BEGINNING OF DOSAGE DAY: FROM THE [TESENTORIKU] PREINITIATION
     Route: 048
  5. TECENTRIQ [Suspect]
     Active Substance: ATEZOLIZUMAB
     Indication: LUNG ADENOCARCINOMA
     Route: 041
     Dates: start: 20180724, end: 20180814
  6. LANTUS XR [Suspect]
     Active Substance: INSULIN GLARGINE
     Indication: DIABETES MELLITUS
     Dosage: BEGINNING OF DOSAGE DAY: DOSAGE FROM [TESENTORIKU] PREINITIATION: 16 ?UNITS
     Route: 065
  7. GLACTIV [Suspect]
     Active Substance: SITAGLIPTIN
     Indication: DIABETES MELLITUS
     Dosage: THE BEGINNING OF DOSAGE DAY: FROM THE [TESENTORIKU] PREINITIATION
     Route: 048

REACTIONS (1)
  - Interstitial lung disease [Recovering/Resolving]

NARRATIVE: CASE EVENT DATE: 20180902
